FAERS Safety Report 5486046-3 (Version None)
Quarter: 2007Q4

REPORT INFORMATION
  Report Type: 
  Country: None (occurrence: None)
  Receive Date: 20071012
  Receipt Date: 20070918
  Transmission Date: 20080405
  Serious: Yes (Life-Threatening, Hospitalization)
  Sender: FDA-Public Use
  Company Number: 200709AGG00728

PATIENT
  Age: 72 Year
  Sex: Male

DRUGS (5)
  1. TIROFIBAN HYDROCHLORIDE (TIROFIBAN HCL) (25 MCG/KG, 0.15 MCG/KG) [Suspect]
     Indication: ACUTE MYOCARDIAL INFARCTION
     Dosage: (INTRAVENOUS BOLUS), (INTRAVENOUS DRIP)
     Route: 040
     Dates: start: 20070808, end: 20070808
  2. TIROFIBAN HYDROCHLORIDE (TIROFIBAN HCL) (25 MCG/KG, 0.15 MCG/KG) [Suspect]
     Indication: ACUTE MYOCARDIAL INFARCTION
     Dosage: (INTRAVENOUS BOLUS), (INTRAVENOUS DRIP)
     Route: 040
     Dates: start: 20070808, end: 20070809
  3. HEPARIN [Concomitant]
  4. ASPIRIN [Concomitant]
  5. CLOPIDOGREL BISULFATE [Concomitant]

REACTIONS (1)
  - PERICARDIAL EFFUSION [None]
